FAERS Safety Report 17729379 (Version 4)
Quarter: 2022Q1

REPORT INFORMATION
  Report Type: Spontaneous
  Country: US (occurrence: US)
  Receive Date: 20200430
  Receipt Date: 20220304
  Transmission Date: 20220423
  Serious: Yes (Hospitalization, Other)
  Sender: FDA-Public Use
  Company Number: US-GILEAD-2020-0462682

PATIENT
  Sex: Female
  Weight: 98.866 kg

DRUGS (63)
  1. ATRIPLA [Suspect]
     Active Substance: EFAVIRENZ\EMTRICITABINE\TENOFOVIR DISOPROXIL FUMARATE
     Indication: HIV infection
     Dosage: UNK
     Route: 048
     Dates: start: 200607, end: 202001
  2. ATRIPLA [Suspect]
     Active Substance: EFAVIRENZ\EMTRICITABINE\TENOFOVIR DISOPROXIL FUMARATE
     Dosage: UNK
     Route: 048
     Dates: start: 200607, end: 202007
  3. STRIBILD [Suspect]
     Active Substance: COBICISTAT\ELVITEGRAVIR\EMTRICITABINE\TENOFOVIR DISOPROXIL FUMARATE
     Indication: HIV infection
     Dosage: UNK
     Route: 048
     Dates: start: 201406
  4. TYLENOL [Concomitant]
     Active Substance: ACETAMINOPHEN
  5. AMOXICILLIN [Concomitant]
     Active Substance: AMOXICILLIN
  6. LOTENSIN HCT [Concomitant]
     Active Substance: BENAZEPRIL HYDROCHLORIDE\HYDROCHLOROTHIAZIDE
  7. VASOTEC [Concomitant]
     Active Substance: ENALAPRIL MALEATE
  8. ZESTRIL [Concomitant]
     Active Substance: LISINOPRIL
  9. ACCUPRIL [Concomitant]
     Active Substance: QUINAPRIL HYDROCHLORIDE
  10. ALUMINUM HYDROXIDE\DIMETHICONE\MAGNESIUM HYDROXIDE [Concomitant]
     Active Substance: ALUMINUM HYDROXIDE\DIMETHICONE\MAGNESIUM HYDROXIDE
  11. MYLANTA [Concomitant]
     Active Substance: ALUMINUM HYDROXIDE\DIMETHICONE\MAGNESIUM HYDROXIDE
  12. RIOPAN MAGEN GEL [Concomitant]
  13. ATORVASTATIN [Concomitant]
     Active Substance: ATORVASTATIN
  14. BACTRIM [Concomitant]
     Active Substance: SULFAMETHOXAZOLE\TRIMETHOPRIM
  15. XANAX [Concomitant]
     Active Substance: ALPRAZOLAM
  16. VALIUM [Concomitant]
     Active Substance: DIAZEPAM
  17. ATIVAN [Concomitant]
     Active Substance: LORAZEPAM
  18. BUMEX [Concomitant]
     Active Substance: BUMETANIDE
  19. HEPARIN [Concomitant]
     Active Substance: HEPARIN SODIUM
  20. FUROSEMIDE\POTASSIUM CHLORIDE [Concomitant]
     Active Substance: FUROSEMIDE\POTASSIUM CHLORIDE
  21. LITHIUM [Concomitant]
     Active Substance: LITHIUM
  22. IBUPROFEN [Concomitant]
     Active Substance: IBUPROFEN
  23. NAPROXEN [Concomitant]
     Active Substance: NAPROXEN
  24. DICLOFENAC [Concomitant]
     Active Substance: DICLOFENAC
  25. PROZAC [Concomitant]
     Active Substance: FLUOXETINE HYDROCHLORIDE
  26. PAXIL CR [Concomitant]
     Active Substance: PAROXETINE HYDROCHLORIDE
  27. ZOLOFT [Concomitant]
     Active Substance: SERTRALINE HYDROCHLORIDE
  28. TACROLIMUS [Concomitant]
     Active Substance: TACROLIMUS
  29. LANTUS [Concomitant]
     Active Substance: INSULIN GLARGINE
  30. HUMALOG [Concomitant]
     Active Substance: INSULIN LISPRO
  31. METFORMIN [Concomitant]
     Active Substance: METFORMIN HYDROCHLORIDE
  32. PIOGLITAZONE [Concomitant]
     Active Substance: PIOGLITAZONE
  33. ZOLPIDEM [Concomitant]
     Active Substance: ZOLPIDEM TARTRATE
  34. GABAPENTIN [Concomitant]
     Active Substance: GABAPENTIN
  35. ASPIRIN [Concomitant]
     Active Substance: ASPIRIN
  36. NORVASC [Concomitant]
     Active Substance: AMLODIPINE BESYLATE
  37. BENAZEPRIL [Concomitant]
     Active Substance: BENAZEPRIL HYDROCHLORIDE
  38. GEMFIBROZIL [Concomitant]
     Active Substance: GEMFIBROZIL
  39. DOXYCYCLINE [Concomitant]
     Active Substance: DOXYCYCLINE
  40. ACTOS [Concomitant]
     Active Substance: PIOGLITAZONE HYDROCHLORIDE
  41. JANUVIA [Concomitant]
     Active Substance: SITAGLIPTIN PHOSPHATE
  42. ALLOPURINOL [Concomitant]
     Active Substance: ALLOPURINOL
  43. TOUJEO [Concomitant]
     Active Substance: INSULIN GLARGINE
  44. BREXPIPRAZOLE [Concomitant]
     Active Substance: BREXPIPRAZOLE
  45. ATARAX [Concomitant]
     Active Substance: HYDROXYZINE HYDROCHLORIDE
  46. ADVAIR HFA [Concomitant]
     Active Substance: FLUTICASONE PROPIONATE\SALMETEROL XINAFOATE
  47. ALBUTEROL [Concomitant]
     Active Substance: ALBUTEROL
  48. WELLBUTRIN [Concomitant]
     Active Substance: BUPROPION HYDROCHLORIDE
  49. CHANTIX [Concomitant]
     Active Substance: VARENICLINE TARTRATE
  50. PRAVASTATIN [Concomitant]
     Active Substance: PRAVASTATIN
  51. METOPROLOL [Concomitant]
     Active Substance: METOPROLOL
  52. LASIX [Concomitant]
     Active Substance: FUROSEMIDE
  53. LOSARTAN [Concomitant]
     Active Substance: LOSARTAN
  54. HYDRODIURIL [Concomitant]
     Active Substance: HYDROCHLOROTHIAZIDE
  55. IRBESARTAN [Concomitant]
     Active Substance: IRBESARTAN
  56. AMLODIPINE [Concomitant]
     Active Substance: AMLODIPINE BESYLATE
  57. ROZEREM [Concomitant]
     Active Substance: RAMELTEON
  58. COMBIVIR [Concomitant]
     Active Substance: LAMIVUDINE\ZIDOVUDINE
  59. KALETRA [Concomitant]
     Active Substance: LOPINAVIR\RITONAVIR
  60. FLUCONAZOLE [Concomitant]
     Active Substance: FLUCONAZOLE
  61. VITAMIN D NOS [Concomitant]
     Active Substance: VITAMIN D NOS
  62. MONTELUKAST [Concomitant]
     Active Substance: MONTELUKAST SODIUM
  63. TIVICAY [Concomitant]
     Active Substance: DOLUTEGRAVIR SODIUM

REACTIONS (27)
  - Chronic kidney disease [Unknown]
  - Foot fracture [Not Recovered/Not Resolved]
  - Fracture infection [Unknown]
  - End stage renal disease [Not Recovered/Not Resolved]
  - Hallucination [Not Recovered/Not Resolved]
  - Bone density decreased [Unknown]
  - Tooth loss [Not Recovered/Not Resolved]
  - Loss of personal independence in daily activities [Not Recovered/Not Resolved]
  - Mobility decreased [Not Recovered/Not Resolved]
  - Pain [Not Recovered/Not Resolved]
  - Emotional distress [Not Recovered/Not Resolved]
  - Anxiety [Not Recovered/Not Resolved]
  - Paranoia [Not Recovered/Not Resolved]
  - Arthralgia [Unknown]
  - Ankle fracture [Unknown]
  - Pain in extremity [Unknown]
  - Dental caries [Unknown]
  - Toothache [Unknown]
  - Limb fracture [Unknown]
  - Osteoarthritis [Unknown]
  - Enthesophyte [Unknown]
  - Back pain [Unknown]
  - Skin lesion [Unknown]
  - Bone loss [Unknown]
  - Soft tissue swelling [Unknown]
  - Depression [Not Recovered/Not Resolved]
  - Aggression [Not Recovered/Not Resolved]

NARRATIVE: CASE EVENT DATE: 20080101
